FAERS Safety Report 14668148 (Version 1)
Quarter: 2018Q1

REPORT INFORMATION
  Report Type: Spontaneous
  Country: US (occurrence: US)
  Receive Date: 20180321
  Receipt Date: 20180321
  Transmission Date: 20180509
  Serious: Yes (Other)
  Sender: FDA-Public Use
  Company Number: None

PATIENT
  Age: 23 Year
  Sex: Female
  Weight: 94.95 kg

DRUGS (2)
  1. MULTIVITAMIN [Concomitant]
     Active Substance: VITAMINS
  2. MIRENA [Suspect]
     Active Substance: LEVONORGESTREL
     Indication: CONTRACEPTION
     Dosage: ?          QUANTITY:1 IUD;?
     Route: 067
     Dates: start: 20170701, end: 20180123

REACTIONS (9)
  - Suicidal ideation [None]
  - Menstruation irregular [None]
  - Anxiety [None]
  - Hot flush [None]
  - Menorrhagia [None]
  - Depression [None]
  - Menopause [None]
  - Mood swings [None]
  - Libido decreased [None]

NARRATIVE: CASE EVENT DATE: 20170801
